FAERS Safety Report 5278591-0 (Version None)
Quarter: 2007Q1

REPORT INFORMATION
  Report Type: 
  Country: None (occurrence: None)
  Receive Date: 20070328
  Receipt Date: 20070327
  Transmission Date: 20070707
  Serious: Yes (Other)
  Sender: FDA-Public Use
  Company Number: 2007-001230

PATIENT
  Age: 71 Year
  Sex: Female
  Weight: 64 kg

DRUGS (19)
  1. FLOLAN [Suspect]
     Indication: PULMONARY HYPERTENSION
     Dosage: 38NGKM UNKNOWN
     Route: 042
     Dates: start: 20001101
  2. TYLENOL [Concomitant]
     Dosage: 325MG AS REQUIRED
     Route: 048
  3. ASCORBIC ACID [Concomitant]
     Dosage: 500MG PER DAY
     Route: 048
  4. CITRACAL [Concomitant]
     Dosage: 400MG PER DAY
     Route: 048
  5. COUMADIN [Concomitant]
     Dosage: 5MG PER DAY
     Route: 048
  6. LOMOTIL [Concomitant]
     Dosage: 2.5MG FOUR TIMES PER DAY
     Route: 048
  7. DARVOCET [Concomitant]
     Dosage: 100MG AS REQUIRED
     Route: 048
  8. CENTRUM SILVER [Concomitant]
     Dosage: 1TAB PER DAY
     Route: 048
  9. IMDUR [Concomitant]
     Dosage: 30MG PER DAY
     Route: 048
  10. LEVOXYL [Concomitant]
     Dosage: .88MG PER DAY
     Route: 048
  11. ASPIRIN [Concomitant]
     Dosage: 81MG PER DAY
     Route: 048
  12. ZOLOFT [Concomitant]
     Dosage: 25MG PER DAY
     Route: 048
  13. DIOVAN [Concomitant]
     Dosage: 160MG PER DAY
     Route: 048
  14. PRILOSEC [Concomitant]
     Dosage: 10MG PER DAY
     Route: 048
  15. ASTELIN [Concomitant]
     Dosage: 2UNIT TWICE PER DAY
     Route: 045
  16. LASIX [Concomitant]
     Dosage: 40MG PER DAY
     Route: 048
  17. LIPITOR [Concomitant]
     Dosage: 10MG PER DAY
     Route: 048
  18. K-DUR 10 [Concomitant]
     Dosage: 20MEQ PER DAY
     Route: 048
  19. CLARITIN [Concomitant]
     Dosage: 10MG PER DAY
     Route: 048

REACTIONS (2)
  - CATHETER RELATED COMPLICATION [None]
  - PHARMACEUTICAL PRODUCT COMPLAINT [None]
